FAERS Safety Report 9164114 (Version 1)
Quarter: 2013Q1

REPORT INFORMATION
  Report Type: Spontaneous
  Country: US (occurrence: US)
  Receive Date: 20130315
  Receipt Date: 20130315
  Transmission Date: 20140127
  Serious: Yes (Hospitalization)
  Sender: FDA-Public Use
  Company Number: US-AMGEN-USASP2013017145

PATIENT
  Age: 80 Year
  Sex: Female

DRUGS (3)
  1. ENBREL [Suspect]
     Indication: PSORIATIC ARTHROPATHY
     Dosage: 50 MG, QWK
     Dates: start: 20061201
  2. ENBREL [Suspect]
     Indication: PSORIASIS
  3. COUMADIN                           /00627701/ [Concomitant]
     Dosage: UNK

REACTIONS (4)
  - Bleeding time abnormal [Recovered/Resolved]
  - Bronchitis [Recovered/Resolved]
  - Duodenogastric reflux [Not Recovered/Not Resolved]
  - Gout [Not Recovered/Not Resolved]
